FAERS Safety Report 20856487 (Version 4)
Quarter: 2022Q4

REPORT INFORMATION
  Report Type: Spontaneous
  Country: US (occurrence: US)
  Receive Date: 20220520
  Receipt Date: 20221101
  Transmission Date: 20230113
  Serious: No
  Sender: FDA-Public Use
  Company Number: US-SA-SAC20220513000123

PATIENT
  Age: 31 Year
  Sex: Female

DRUGS (2)
  1. CERDELGA [Suspect]
     Active Substance: ELIGLUSTAT
     Indication: Gaucher^s disease
     Dosage: 84 MG, BID
     Route: 048
  2. CERDELGA [Suspect]
     Active Substance: ELIGLUSTAT
     Dosage: 252 MG (2 CAPSULES BY MOUTH IN THE MORNING AND 1 CAPSULE IN THE EVENING), BID
     Route: 048
     Dates: start: 202203

REACTIONS (5)
  - Nasopharyngitis [Unknown]
  - Visual impairment [Unknown]
  - Cough [Unknown]
  - Fatigue [Unknown]
  - Extra dose administered [Unknown]

NARRATIVE: CASE EVENT DATE: 20220301
